FAERS Safety Report 6759692-4 (Version None)
Quarter: 2010Q2

REPORT INFORMATION
  Report Type: 
  Country: None (occurrence: None)
  Receive Date: 20100604
  Receipt Date: 20100603
  Transmission Date: 20101027
  Serious: Yes (Life-Threatening)
  Sender: FDA-Public Use
  Company Number: 2010TJ0083FU1

PATIENT
  Age: 60 Year
  Sex: Female

DRUGS (2)
  1. TWINJECT 0.3 [Suspect]
     Indication: HYPERSENSITIVITY
     Dosage: 0.3 MG AS NEEDED
     Dates: start: 20100405, end: 20100405
  2. MICARDIS PLUS TABLETS 80 [Concomitant]

REACTIONS (3)
  - ANAPHYLACTIC REACTION [None]
  - DEVICE MALFUNCTION [None]
  - PRODUCT QUALITY ISSUE [None]
